FAERS Safety Report 5335206-0 (Version None)
Quarter: 2007Q2

REPORT INFORMATION
  Report Type: 
  Country: None (occurrence: None)
  Receive Date: 20070525
  Receipt Date: 20070516
  Transmission Date: 20071010
  Serious: Yes (Other)
  Sender: FDA-Public Use
  Company Number: US-PFIZER INC-2006033858

PATIENT
  Sex: Female
  Weight: 80.7 kg

DRUGS (13)
  1. LIPITOR [Suspect]
     Indication: BLOOD CHOLESTEROL INCREASED
     Route: 048
  2. POTASSIUM ACETATE [Suspect]
  3. NEURONTIN [Suspect]
     Indication: BURNING SENSATION
     Dosage: DAILY DOSE:1500MG
  4. GABAPENTIN [Suspect]
     Indication: BURNING SENSATION
  5. ALL OTHER THERAPEUTIC PRODUCTS [Concomitant]
  6. DIURETICS [Concomitant]
  7. TRICOR [Concomitant]
  8. ACETYLSALICYLIC ACID SRT [Concomitant]
  9. TYLENOL [Concomitant]
  10. CARDIOVASCULAR SYSTEM DRUGS [Concomitant]
  11. ANTIHYPERTENSIVES [Concomitant]
  12. VITAMIN A [Concomitant]
  13. CALCIUM CHLORIDE [Concomitant]

REACTIONS (14)
  - ANAEMIA [None]
  - BLOOD CHOLESTEROL INCREASED [None]
  - BLOOD POTASSIUM INCREASED [None]
  - BODY HEIGHT DECREASED [None]
  - BURNING SENSATION [None]
  - EATING DISORDER [None]
  - GAIT DISTURBANCE [None]
  - HEADACHE [None]
  - HYPERTENSION [None]
  - INSOMNIA [None]
  - LOW DENSITY LIPOPROTEIN INCREASED [None]
  - PAIN IN EXTREMITY [None]
  - SOMNOLENCE [None]
  - WHITE BLOOD CELL COUNT INCREASED [None]
